FAERS Safety Report 17402437 (Version 1)
Quarter: 2020Q1

REPORT INFORMATION
  Report Type: Spontaneous
  Country: US (occurrence: US)
  Receive Date: 20200210
  Receipt Date: 20200210
  Transmission Date: 20200409
  Serious: Yes (Other)
  Sender: FDA-Public Use
  Company Number: None

PATIENT
  Age: 92 Year
  Sex: Female
  Weight: 54 kg

DRUGS (3)
  1. ASPIRIN 81 [Concomitant]
     Active Substance: ASPIRIN
  2. LEVOTHYROXINE. [Concomitant]
     Active Substance: LEVOTHYROXINE
  3. ZILRETTA [Suspect]
     Active Substance: TRIAMCINOLONE ACETONIDE
     Indication: OSTEOARTHRITIS
     Dosage: ?          QUANTITY:1 INJECTION(S);OTHER FREQUENCY:JUST ONCE;OTHER ROUTE:INTRA-ARTICULAR INJECTION?
     Dates: start: 20200124, end: 20200124

REACTIONS (3)
  - Constipation [None]
  - Urinary retention [None]
  - Fluid retention [None]

NARRATIVE: CASE EVENT DATE: 20200202
